FAERS Safety Report 25965857 (Version 1)
Quarter: 2025Q4

REPORT INFORMATION
  Report Type: Report from Study
  Country: EU (occurrence: EU)
  Receive Date: 20251027
  Receipt Date: 20251027
  Transmission Date: 20260118
  Serious: Yes (Other)
  Sender: ABBVIE
  Company Number: EU-ABBVIE-6519465

PATIENT
  Age: 86 Year
  Sex: Male

DRUGS (2)
  1. FOSCARBIDOPA\FOSLEVODOPA [Suspect]
     Active Substance: FOSCARBIDOPA\FOSLEVODOPA
     Indication: Parkinson^s disease
     Route: 058
     Dates: start: 20251020, end: 20251023
  2. FOSCARBIDOPA\FOSLEVODOPA [Suspect]
     Active Substance: FOSCARBIDOPA\FOSLEVODOPA
     Dosage: BASE DOSE ADJUSTED BY 0.02
     Route: 058
     Dates: start: 20251023

REACTIONS (7)
  - Depressed level of consciousness [Not Recovered/Not Resolved]
  - Dyskinesia [Recovering/Resolving]
  - Speech disorder [Not Recovered/Not Resolved]
  - Hallucination [Recovered/Resolved]
  - On and off phenomenon [Not Recovered/Not Resolved]
  - Mobility decreased [Not Recovered/Not Resolved]
  - Sluggishness [Not Recovered/Not Resolved]

NARRATIVE: CASE EVENT DATE: 20251001
